FAERS Safety Report 16049540 (Version 3)
Quarter: 2019Q2

REPORT INFORMATION
  Report Type: Spontaneous
  Country: US (occurrence: US)
  Receive Date: 20190307
  Receipt Date: 20190617
  Transmission Date: 20190711
  Serious: No
  Sender: FDA-Public Use
  Company Number: US-PFIZER INC-2019087914

PATIENT
  Age: 52 Year
  Sex: Male
  Weight: 81.19 kg

DRUGS (23)
  1. PRAZOSIN. [Concomitant]
     Active Substance: PRAZOSIN
     Dosage: 5 MG, 1X/DAY (AT BEDTIME)
     Route: 048
  2. BYSTOLIC [Concomitant]
     Active Substance: NEBIVOLOL HYDROCHLORIDE
     Dosage: 5 MG, DAILY (FOR 30 DAYS)
     Route: 048
  3. DESVENLAFAXINE. [Concomitant]
     Active Substance: DESVENLAFAXINE
     Dosage: 100 MG, DAILY (FOR 90 DAYS)
     Route: 048
  4. LASIX [Concomitant]
     Active Substance: FUROSEMIDE
     Dosage: 40 MG, DAILY
     Route: 048
  5. LORAZEPAM. [Concomitant]
     Active Substance: LORAZEPAM
     Dosage: 1 MG, AS NEEDED (EVERY 8 HOURS FOR 15 DAYS)
     Route: 048
  6. ATROVENT HFA [Concomitant]
     Active Substance: IPRATROPIUM BROMIDE
     Dosage: 17 UG, AS NEEDED (2 PUFFS 4 TIMES A DAY)
     Route: 055
  7. CEFDINIR. [Concomitant]
     Active Substance: CEFDINIR
     Dosage: 300 MG, 2X/DAY (EVERY 12 HOURS BY ORAL ROUTE FOR 10 DAYS.)
     Route: 048
  8. NICOTROL [Concomitant]
     Active Substance: NICOTINE
     Dosage: 10 MG, DAILY  (INHALE 8 CARTRIDGES EVERY DAY BY INHALATION ROUTE FOR 30 DAYS)
     Route: 055
  9. NICOTROL [Concomitant]
     Active Substance: NICOTINE
     Dosage: UNK
  10. CHANTIX [Suspect]
     Active Substance: VARENICLINE TARTRATE
     Indication: TOBACCO ABUSE
  11. ATORVASTATIN [Concomitant]
     Active Substance: ATORVASTATIN
     Dosage: 40 MG, DAILY
     Route: 048
  12. BREO ELLIPTA [Concomitant]
     Active Substance: FLUTICASONE FUROATE\VILANTEROL TRIFENATATE
     Dosage: UNK, DAILY ( (100 MCG-25 MCG) (INHALE 1 PUFF BY INHALATION ROUTE)
     Route: 055
  13. TOPIRAMATE. [Concomitant]
     Active Substance: TOPIRAMATE
     Dosage: 100 MG, DAILY
     Route: 048
  14. CLOPIDOGREL [Concomitant]
     Active Substance: CLOPIDOGREL BISULFATE
     Dosage: 75 MG, DAILY
     Route: 048
  15. POTASSIUM CHLORIDE. [Concomitant]
     Active Substance: POTASSIUM CHLORIDE
     Dosage: 15 ML, DAILY (20 MEQ/15 ML)(FOR 30 DAYS)
     Route: 048
  16. CHANTIX [Suspect]
     Active Substance: VARENICLINE TARTRATE
     Indication: SMOKING CESSATION THERAPY
     Dosage: 1 MG, 2X/DAY
     Route: 048
  17. TIZANIDINE. [Concomitant]
     Active Substance: TIZANIDINE
     Dosage: 4 MG, 3X/DAY
  18. GABAPENTIN. [Concomitant]
     Active Substance: GABAPENTIN
     Dosage: 600 MG, 3X/DAY
     Route: 048
  19. HYDROXYZINE HCL [Concomitant]
     Active Substance: HYDROXYZINE HYDROCHLORIDE
     Dosage: 25 MG, 3X/DAY
     Route: 048
  20. IPRATROPIUM BROMIDE AND ALBUTEROL SULFATE [Concomitant]
     Active Substance: ALBUTEROL SULFATE\IPRATROPIUM BROMIDE
     Dosage: 3 ML, 4X/DAY (IPRATROPIUM-ALBUTEROL 0.5 MG-3 MG)
  21. MORPHINE [Concomitant]
     Active Substance: MORPHINE
     Dosage: 30 MG, AS NEEDED (EVERY 12 HOURS)
     Route: 048
  22. NYSTATIN. [Concomitant]
     Active Substance: NYSTATIN
     Dosage: 5 ML, 4X/DAY (FOR 10 DAYS)
     Route: 048
  23. ARIPIPRAZOLE. [Concomitant]
     Active Substance: ARIPIPRAZOLE
     Dosage: 0.5 MG, DAILY
     Route: 048

REACTIONS (5)
  - Anger [Unknown]
  - Memory impairment [Unknown]
  - Depression [Recovered/Resolved]
  - Anxiety [Unknown]
  - Nightmare [Unknown]
